FAERS Safety Report 8830701 (Version 1)
Quarter: 2012Q4

REPORT INFORMATION
  Report Type: 
  Country: MX (occurrence: MX)
  Receive Date: 20121009
  Receipt Date: 20121009
  Transmission Date: 20130627
  Serious: Yes (Hospitalization, Other)
  Sender: FDA-Public Use
  Company Number: PHHY2012MX088362

PATIENT
  Sex: Female

DRUGS (2)
  1. RASILEZ [Suspect]
     Indication: HYPERTENSION
     Dosage: 1 DF, daily
     Dates: start: 201001, end: 201209
  2. OLMETEC [Concomitant]
     Indication: HYPERTENSION
     Dosage: 1 DF, Q12H
     Dates: start: 201001

REACTIONS (1)
  - Renal neoplasm [Unknown]
